FAERS Safety Report 7944127-6 (Version None)
Quarter: 2011Q4

REPORT INFORMATION
  Report Type: 
  Country: None (occurrence: None)
  Receive Date: 20111128
  Receipt Date: 20111123
  Transmission Date: 20120403
  Serious: Yes (Life-Threatening)
  Sender: FDA-Public Use
  Company Number: CN-ASTRAZENECA-2011SE71411

PATIENT

DRUGS (4)
  1. DEZOCINE [Suspect]
     Indication: ANAESTHESIA
     Dosage: 5 MG
     Route: 042
  2. PROPOFOL [Suspect]
     Indication: ANAESTHESIA
     Dosage: 1.5 MG/KG
     Route: 042
  3. PROPOFOL [Suspect]
     Dosage: 3-5 MG/KG/HOUR
     Route: 042
  4. DEZOCINE [Suspect]
     Dosage: 1 UG/KG/MIN
     Route: 042

REACTIONS (1)
  - RESPIRATORY ARREST [None]
